FAERS Safety Report 8578280-0 (Version None)
Quarter: 2012Q3

REPORT INFORMATION
  Report Type: 
  Country: None (occurrence: None)
  Receive Date: 20120808
  Receipt Date: 20120730
  Transmission Date: 20120928
  Serious: Yes (Hospitalization, Other)
  Sender: FDA-Public Use
  Company Number: BR-SANOFI-AVENTIS-2012SA054516

PATIENT
  Age: 78 Year
  Sex: Female
  Weight: 67 kg

DRUGS (10)
  1. SOMALGIN [Concomitant]
     Indication: THROMBOSIS
     Dosage: STRENGTH: 100 MG/TABLET
  2. AUTOPEN 24 [Suspect]
     Indication: DEVICE THERAPY
  3. DAFLON [Concomitant]
     Dosage: 500 MG/TABLET
  4. HUMALOG [Concomitant]
     Indication: TYPE 2 DIABETES MELLITUS
     Dosage: ACC TO GLYCEMIC LEVEL
  5. SIMVASTATIN [Concomitant]
  6. LANTUS [Suspect]
     Route: 058
  7. CARVEDILOL [Concomitant]
     Dosage: STRENGTH: 6.25 MG/TABLET
  8. BENERVA [Concomitant]
     Indication: VITAMIN SUPPLEMENTATION
     Dosage: STRENGTH: 300MG/TABLET
  9. LEXOTAN [Concomitant]
     Dosage: STRENGTH: 3 MG/TABLET
  10. LOSARTAN POTASSIUM [Concomitant]
     Indication: HYPERTENSION
     Dosage: 500 MG/TABLET

REACTIONS (11)
  - OCULAR HYPERAEMIA [None]
  - THROMBOSIS [None]
  - EYE HAEMORRHAGE [None]
  - HAEMORRHAGE [None]
  - HYPERGLYCAEMIA [None]
  - LOSS OF CONSCIOUSNESS [None]
  - CONFUSIONAL STATE [None]
  - CHEST DISCOMFORT [None]
  - HYPOGLYCAEMIA [None]
  - HYPERHIDROSIS [None]
  - FEELING ABNORMAL [None]
